FAERS Safety Report 19606008 (Version 1)
Quarter: 2021Q3

REPORT INFORMATION
  Report Type: Other
  Country: JP (occurrence: JP)
  Receive Date: 20210723
  Receipt Date: 20210723
  Transmission Date: 20211014
  Serious: Yes (Other)
  Sender: FDA-Public Use
  Company Number: JP-ROCHE-2873549

PATIENT
  Age: 64 Year
  Sex: Female

DRUGS (5)
  1. PACLITAXEL. [Concomitant]
     Active Substance: PACLITAXEL
     Indication: METAPLASTIC BREAST CARCINOMA
     Dosage: UNK
     Route: 041
  2. DOXORUBICIN HYDROCHLORIDE. [Concomitant]
     Active Substance: DOXORUBICIN HYDROCHLORIDE
     Indication: METAPLASTIC BREAST CARCINOMA
     Dosage: UNK
     Route: 041
  3. ERIBULIN MESILATE [Concomitant]
     Active Substance: ERIBULIN
     Indication: METAPLASTIC BREAST CARCINOMA
     Dosage: UNK
     Route: 041
  4. AVASTIN [Suspect]
     Active Substance: BEVACIZUMAB
     Indication: METAPLASTIC BREAST CARCINOMA
     Dosage: UNK
     Route: 041
  5. CYCLOPHOSPHAMIDE MONOHYDRATE [Concomitant]
     Active Substance: CYCLOPHOSPHAMIDE
     Indication: METAPLASTIC BREAST CARCINOMA
     Dosage: UNK
     Route: 041

REACTIONS (2)
  - Tumour haemorrhage [Unknown]
  - Anaemia [Unknown]
